FAERS Safety Report 9360538 (Version 2)
Quarter: 2013Q3

REPORT INFORMATION
  Report Type: Spontaneous
  Country: BR (occurrence: BR)
  Receive Date: 20130621
  Receipt Date: 20130708
  Transmission Date: 20140515
  Serious: Yes (Hospitalization)
  Sender: FDA-Public Use
  Company Number: BR-ABBOTT-13X-020-1106189-00

PATIENT
  Age: 58 Year
  Sex: Male

DRUGS (3)
  1. DEPAKENE [Suspect]
     Indication: CONVULSION PROPHYLAXIS
     Route: 048
     Dates: start: 201306
  2. UNKNOWN MEDICATION [Concomitant]
     Indication: ANTICOAGULANT THERAPY
  3. ANTIHYPERTENSIVES [Concomitant]
     Indication: HYPERTENSION

REACTIONS (7)
  - Cerebral disorder [Recovered/Resolved]
  - Coordination abnormal [Unknown]
  - Urinary incontinence [Unknown]
  - Hypophagia [Unknown]
  - Unresponsive to stimuli [Unknown]
  - Hypersomnia [Unknown]
  - Lethargy [Unknown]
